FAERS Safety Report 23544660 (Version 1)
Quarter: 2024Q1

REPORT INFORMATION
  Report Type: Spontaneous
  Country: US (occurrence: US)
  Receive Date: 20240220
  Receipt Date: 20240220
  Transmission Date: 20240410
  Serious: No
  Sender: FDA-Public Use
  Company Number: US-PFIZER INC-202400042714

PATIENT
  Age: 80 Year
  Sex: Female
  Weight: 90.72 kg

DRUGS (4)
  1. PAXLOVID [Suspect]
     Active Substance: NIRMATRELVIR\RITONAVIR
     Indication: COVID-19 treatment
     Dosage: UNK
     Dates: start: 20240122, end: 20240126
  2. LOSARTAN [Concomitant]
     Active Substance: LOSARTAN
     Indication: Atrial fibrillation
     Dosage: UNK
  3. METOPROLOL [Concomitant]
     Active Substance: METOPROLOL
     Indication: Atrial fibrillation
     Dosage: UNK
  4. ELIQUIS [Concomitant]
     Active Substance: APIXABAN
     Indication: Atrial fibrillation
     Dosage: UNK

REACTIONS (3)
  - Dysgeusia [Unknown]
  - Ageusia [Unknown]
  - Parosmia [Unknown]

NARRATIVE: CASE EVENT DATE: 20240101
